FAERS Safety Report 10983026 (Version 1)
Quarter: 2015Q2

REPORT INFORMATION
  Report Type: Spontaneous
  Country: US (occurrence: US)
  Receive Date: 20150403
  Receipt Date: 20150403
  Transmission Date: 20150821
  Serious: Yes (Other)
  Sender: FDA-Public Use
  Company Number: US-AMGEN-USASP2015027714

PATIENT
  Age: 56 Year
  Sex: Female

DRUGS (1)
  1. PROLIA [Suspect]
     Active Substance: DENOSUMAB
     Indication: PRODUCT USED FOR UNKNOWN INDICATION
     Dosage: UNK
     Route: 065

REACTIONS (10)
  - Squamous cell carcinoma [Unknown]
  - Staphylococcus test positive [Unknown]
  - Scar [Unknown]
  - Hypersensitivity [Unknown]
  - Herpes zoster [Unknown]
  - Skin infection [Unknown]
  - Pain [Unknown]
  - Impaired healing [Unknown]
  - Vision blurred [Unknown]
  - Blister [Unknown]
